FAERS Safety Report 15336574 (Version 1)
Quarter: 2018Q3

REPORT INFORMATION
  Report Type: Spontaneous
  Country: US (occurrence: US)
  Receive Date: 20180830
  Receipt Date: 20180830
  Transmission Date: 20181010
  Serious: Yes (Other)
  Sender: FDA-Public Use
  Company Number: US-PRINSTON PHARMACEUTICAL INC.-2018PRN01045

PATIENT
  Sex: Female

DRUGS (1)
  1. VALSARTAN. [Suspect]
     Active Substance: VALSARTAN
     Indication: BLOOD PRESSURE ABNORMAL
     Dosage: 360 MG, 1X/DAY
     Route: 048
     Dates: start: 20180716

REACTIONS (7)
  - Loss of consciousness [Unknown]
  - Feeling hot [Unknown]
  - Dizziness [Unknown]
  - Cold sweat [Unknown]
  - Malaise [Unknown]
  - Pain [Unknown]
  - Vomiting [Unknown]

NARRATIVE: CASE EVENT DATE: 20180721
